FAERS Safety Report 4415563-X (Version None)
Quarter: 2004Q3

REPORT INFORMATION
  Report Type: 
  Country: None (occurrence: None)
  Receive Date: 20040804
  Receipt Date: 20040608
  Transmission Date: 20050211
  Serious: Yes (Other)
  Sender: FDA-Public Use
  Company Number: JP-MERCK-0406USA01299

PATIENT
  Age: 60 Year
  Sex: Male

DRUGS (6)
  1. PRIMAXIN [Suspect]
     Route: 041
     Dates: start: 20040401, end: 20040509
  2. CLINDAMYCIN [Concomitant]
     Route: 051
  3. MEDICON [Suspect]
     Route: 048
     Dates: start: 20040414, end: 20040518
  4. VOLTAREN [Concomitant]
     Route: 054
  5. PEPCID [Suspect]
     Route: 048
     Dates: start: 20040414, end: 20040518
  6. AMOBAN [Suspect]
     Route: 048
     Dates: start: 20040414, end: 20040518

REACTIONS (2)
  - FEBRILE NEUTROPENIA [None]
  - WHITE BLOOD CELL COUNT DECREASED [None]
